FAERS Safety Report 20625742 (Version 1)
Quarter: 2022Q1

REPORT INFORMATION
  Report Type: Spontaneous
  Country: US (occurrence: None)
  Receive Date: 20220323
  Receipt Date: 20220323
  Transmission Date: 20220423
  Serious: No
  Sender: FDA-Public Use
  Company Number: US-ROCHE-2900065

PATIENT
  Sex: Female

DRUGS (6)
  1. ERIVEDGE [Suspect]
     Active Substance: VISMODEGIB
     Indication: Basal cell carcinoma
     Route: 048
     Dates: start: 20210811
  2. GLUCOSAMINE [Concomitant]
     Active Substance: GLUCOSAMINE
  3. FENOFIBRATE [Concomitant]
     Active Substance: FENOFIBRATE
  4. GABAPENTIN [Concomitant]
     Active Substance: GABAPENTIN
  5. HYDROCODONE [Concomitant]
     Active Substance: HYDROCODONE
  6. ZOLPIDEM [Concomitant]
     Active Substance: ZOLPIDEM TARTRATE

REACTIONS (4)
  - Malaise [Not Recovered/Not Resolved]
  - Nausea [Not Recovered/Not Resolved]
  - Asthenia [Not Recovered/Not Resolved]
  - Dizziness [Not Recovered/Not Resolved]
